FAERS Safety Report 4460778-8 (Version None)
Quarter: 2004Q3

REPORT INFORMATION
  Report Type: 
  Country: None (occurrence: None)
  Receive Date: 20040928
  Receipt Date: 20040803
  Transmission Date: 20050211
  Serious: No
  Sender: FDA-Public Use
  Company Number: US-GLAXOSMITHKLINE-A0520741A

PATIENT
  Age: 78 Year
  Sex: Female
  Weight: 58.2 kg

DRUGS (6)
  1. ADVAIR DISKUS 100/50 [Suspect]
     Indication: ASTHMA
     Dosage: 1PUFF TWICE PER DAY
     Route: 055
  2. SEREVENT [Suspect]
     Indication: ASTHMA
     Dosage: 1PUFF TWICE PER DAY
     Route: 055
  3. MAXAIR [Concomitant]
  4. SINGULAIR [Concomitant]
  5. LISINOPRIL [Concomitant]
  6. ESTROGEN [Concomitant]

REACTIONS (3)
  - APHONIA [None]
  - DRUG INEFFECTIVE [None]
  - HOARSENESS [None]
